FAERS Safety Report 5507724-3 (Version None)
Quarter: 2007Q4

REPORT INFORMATION
  Report Type: 
  Country: None (occurrence: None)
  Receive Date: 20071102
  Receipt Date: 20071023
  Transmission Date: 20080405
  Serious: Yes (Hospitalization, Other)
  Sender: FDA-Public Use
  Company Number: 2006P1000050

PATIENT
  Age: 59 Year
  Sex: Male
  Weight: 76 kg

DRUGS (5)
  1. RETEPLASE (RETEPLASE) [Suspect]
     Indication: ACUTE MYOCARDIAL INFARCTION
     Dosage: 5 IU;X1;IVB; 5 IU;X1;IVB
     Route: 040
     Dates: start: 20051118, end: 20051118
  2. RETEPLASE (RETEPLASE) [Suspect]
     Indication: ACUTE MYOCARDIAL INFARCTION
     Dosage: 5 IU;X1;IVB; 5 IU;X1;IVB
     Route: 040
     Dates: start: 20051118, end: 20051118
  3. ABCIXIMAB (ABCIXIMAB) [Suspect]
     Indication: ACUTE MYOCARDIAL INFARCTION
     Dosage: 9.5 ML;X1;IVB; 21.6 ML;X1;IV
     Route: 040
     Dates: start: 20051118, end: 20051118
  4. ABCIXIMAB (ABCIXIMAB) [Suspect]
     Indication: ACUTE MYOCARDIAL INFARCTION
     Dosage: 9.5 ML;X1;IVB; 21.6 ML;X1;IV
     Route: 040
     Dates: start: 20051118, end: 20051118
  5. HEPARIN [Concomitant]

REACTIONS (2)
  - CORONARY ARTERY DISEASE [None]
  - ISCHAEMIA [None]
